FAERS Safety Report 13717007 (Version 2)
Quarter: 2018Q1

REPORT INFORMATION
  Report Type: Report from Study
  Country: JP (occurrence: JP)
  Receive Date: 20170705
  Receipt Date: 20180103
  Transmission Date: 20180508
  Serious: Yes (Death, Hospitalization)
  Sender: FDA-Public Use
  Company Number: JP-ASTRAZENECA-2017SE69048

PATIENT
  Age: 67 Year
  Sex: Female
  Weight: 36 kg

DRUGS (1)
  1. TAGRISSO [Suspect]
     Active Substance: OSIMERTINIB
     Indication: NON-SMALL CELL LUNG CANCER
     Route: 048
     Dates: start: 20170210, end: 20170217

REACTIONS (3)
  - Vomiting [Unknown]
  - Lymphangiosis carcinomatosa [Fatal]
  - Nausea [Unknown]

NARRATIVE: CASE EVENT DATE: 20170218
